FAERS Safety Report 4362274-5 (Version None)
Quarter: 2004Q2

REPORT INFORMATION
  Report Type: 
  Country: None (occurrence: None)
  Receive Date: 20040517
  Receipt Date: 20040510
  Transmission Date: 20050107
  Serious: Yes (Hospitalization)
  Sender: FDA-Public Use
  Company Number: K200400591

PATIENT
  Age: 73 Year
  Sex: Female

DRUGS (5)
  1. ALTACE [Suspect]
     Indication: ESSENTIAL HYPERTENSION
     Dosage: SEE IMAGE
     Route: 048
     Dates: start: 20040408, end: 20040408
  2. ALTACE [Suspect]
     Indication: ESSENTIAL HYPERTENSION
     Dosage: SEE IMAGE
     Route: 048
     Dates: start: 20040101
  3. NORTEM (TEMAZEPAM) [Concomitant]
  4. ACETYLSALICYLIC ACID SRT [Concomitant]
  5. MICARDIS HCT [Concomitant]

REACTIONS (4)
  - CIRCULATORY COLLAPSE [None]
  - DIZZINESS [None]
  - DRY THROAT [None]
  - PALPITATIONS [None]
